FAERS Safety Report 6200524-0 (Version None)
Quarter: 2009Q2

REPORT INFORMATION
  Report Type: 
  Country: None (occurrence: None)
  Receive Date: 20090522
  Receipt Date: 20090514
  Transmission Date: 20091009
  Serious: Yes (Other)
  Sender: FDA-Public Use
  Company Number: US-AMGEN-KDL343966

PATIENT
  Sex: Female
  Weight: 56.8 kg

DRUGS (8)
  1. PROCRIT [Suspect]
     Indication: HEPATITIS C
     Route: 058
     Dates: start: 20080715, end: 20090205
  2. PEG-INTRON [Concomitant]
     Dates: start: 20080621
  3. RIBAVIRIN [Concomitant]
     Route: 048
     Dates: start: 20080621
  4. IRON [Concomitant]
     Route: 048
  5. CENTRUM SILVER [Concomitant]
     Route: 048
  6. TRIAMTERENE AND HYDROCHLOROTHIAZIDE [Concomitant]
     Route: 048
  7. HYDROXYZINE HYDROCHLORIDE [Concomitant]
  8. MECLIZINE HCL [Concomitant]

REACTIONS (3)
  - DECREASED APPETITE [None]
  - DEPRESSION [None]
  - THERAPEUTIC RESPONSE DECREASED [None]
